FAERS Safety Report 4688331-1 (Version None)
Quarter: 2005Q2

REPORT INFORMATION
  Report Type: 
  Country: None (occurrence: None)
  Receive Date: 20050607
  Receipt Date: 20050524
  Transmission Date: 20051028
  Serious: Yes (Other)
  Sender: FDA-Public Use
  Company Number: BCM-000909

PATIENT
  Age: 23 Year
  Sex: Female

DRUGS (1)
  1. GADOTERIDOL/ PROHANCE (BATCH # (S): T2059) [Suspect]
     Indication: NUCLEAR MAGNETIC RESONANCE IMAGING
     Dosage: 8 ML, IV
     Route: 042
     Dates: start: 20050517, end: 20050517

REACTIONS (2)
  - NAUSEA [None]
  - THROAT TIGHTNESS [None]
